FAERS Safety Report 4964255-7 (Version None)
Quarter: 2006Q1

REPORT INFORMATION
  Report Type: 
  Country: None (occurrence: None)
  Receive Date: 20060331
  Receipt Date: 20060320
  Transmission Date: 20060701
  Serious: No
  Sender: FDA-Public Use
  Company Number: DE200603005715

PATIENT
  Age: 29 Year
  Sex: Male

DRUGS (2)
  1. CYMBALTA [Suspect]
     Indication: DEPRESSION
     Dosage: 60 MG, DAILY (1/D), ORAL
     Route: 048
     Dates: start: 20050923, end: 20051012
  2. NEUROCIL (LEVOMEPROMAZINE MALEATE) [Concomitant]

REACTIONS (2)
  - HEPATIC STEATOSIS [None]
  - REFUSAL OF TREATMENT BY PATIENT [None]
